FAERS Safety Report 18427254 (Version 1)
Quarter: 2020Q4

REPORT INFORMATION
  Report Type: Spontaneous
  Country: HU (occurrence: HU)
  Receive Date: 20201026
  Receipt Date: 20201026
  Transmission Date: 20210114
  Serious: Yes (Disabling)
  Sender: FDA-Public Use
  Company Number: HU-MYLANLABS-2020M1088592

PATIENT
  Age: 68 Year
  Sex: Male

DRUGS (25)
  1. FENTANYL. [Suspect]
     Active Substance: FENTANYL
     Dosage: UNK
     Dates: start: 20200117, end: 20200117
  2. SUFENTANIL [Suspect]
     Active Substance: SUFENTANIL
     Indication: PRODUCT USED FOR UNKNOWN INDICATION
     Dosage: 40 MICROGRAM, TOTAL
     Dates: start: 20200117, end: 20200117
  3. ADRENALINE                         /00003901/ [Suspect]
     Active Substance: EPINEPHRINE
     Indication: EPIDURAL ANAESTHESIA
     Dosage: UNK
     Dates: start: 20200117, end: 20200117
  4. BUPIVACAINE. [Suspect]
     Active Substance: BUPIVACAINE
     Indication: EPIDURAL ANAESTHESIA
     Dosage: UNK
     Dates: start: 20200117, end: 20200117
  5. FENTANYL. [Suspect]
     Active Substance: FENTANYL
     Indication: EPIDURAL ANAESTHESIA
     Dosage: 2 MILLILITER
     Dates: start: 20200117, end: 20200117
  6. CONTROLOC [Suspect]
     Active Substance: PANTOPRAZOLE SODIUM
     Indication: PRODUCT USED FOR UNKNOWN INDICATION
     Dosage: 1 DOSAGE FORM, BID
     Dates: start: 20200117, end: 20200129
  7. CONTROLOC [Suspect]
     Active Substance: PANTOPRAZOLE SODIUM
     Dosage: 1 DOSAGE FORM
     Dates: start: 20200128, end: 20200129
  8. BRIDION [Suspect]
     Active Substance: SUGAMMADEX
     Indication: PRODUCT USED FOR UNKNOWN INDICATION
     Dosage: 50 MILLIGRAM, TOTAL
     Dates: start: 20200117, end: 20200117
  9. ALGOPYRIN                          /06276704/ [Suspect]
     Active Substance: METAMIZOLE SODIUM
     Indication: PRODUCT USED FOR UNKNOWN INDICATION
     Dosage: 2 GRAM, TOTAL
     Dates: start: 20200117, end: 20200117
  10. KLION                              /00012501/ [Suspect]
     Active Substance: METRONIDAZOLE
     Indication: PRODUCT USED FOR UNKNOWN INDICATION
     Dosage: 500 MILLIGRAM, TOTAL
     Dates: start: 20200117, end: 20200117
  11. PARACETAMOL [Suspect]
     Active Substance: ACETAMINOPHEN
     Indication: PREMEDICATION
     Dosage: 1 GRAM, TOTAL
     Dates: start: 20200117, end: 20200117
  12. CLAFORAN [Suspect]
     Active Substance: CEFOTAXIME SODIUM
     Indication: PRODUCT USED FOR UNKNOWN INDICATION
     Dosage: 1 GRAM, TOTAL
     Dates: start: 20200117, end: 20200117
  13. CLAFORAN [Suspect]
     Active Substance: CEFOTAXIME SODIUM
     Dosage: 1 GRAM, BID
     Dates: start: 20200117, end: 20200121
  14. FENTANYL. [Suspect]
     Active Substance: FENTANYL
     Dosage: 2 MILLILITER
     Dates: start: 20200119, end: 20200119
  15. LIDOCAINE. [Suspect]
     Active Substance: LIDOCAINE
     Indication: EPIDURAL ANAESTHESIA
     Dosage: UNK
     Dates: start: 20200117, end: 20200117
  16. KLION                              /00012501/ [Suspect]
     Active Substance: METRONIDAZOLE
     Dosage: UNK
     Dates: start: 20200117, end: 20200127
  17. ALGOPYRIN                          /06276704/ [Suspect]
     Active Substance: METAMIZOLE SODIUM
     Dosage: UNK
     Dates: start: 20200120, end: 20200120
  18. XANAX [Suspect]
     Active Substance: ALPRAZOLAM
     Indication: PREMEDICATION
     Dosage: 0.25 MILLIGRAM, TOTAL
     Dates: start: 20200117, end: 20200117
  19. ONDANSETRON [Suspect]
     Active Substance: ONDANSETRON
     Indication: PRODUCT USED FOR UNKNOWN INDICATION
     Dosage: 4 MILLIGRAM, TOTAL
     Dates: start: 20200117, end: 20200117
  20. TRAMADOL. [Suspect]
     Active Substance: TRAMADOL
     Indication: PRODUCT USED FOR UNKNOWN INDICATION
     Dosage: UNK
     Dates: start: 20200120, end: 20200120
  21. ESMERON [Suspect]
     Active Substance: ROCURONIUM BROMIDE
     Indication: PRODUCT USED FOR UNKNOWN INDICATION
     Dosage: UNK
     Dates: start: 20200117, end: 20200117
  22. CLEXANE [Suspect]
     Active Substance: ENOXAPARIN SODIUM
     Indication: PRODUCT USED FOR UNKNOWN INDICATION
     Dosage: 0.4 MILLILITER
     Dates: start: 202001, end: 20200129
  23. SUPRAX [Suspect]
     Active Substance: CEFIXIME
     Indication: PRODUCT USED FOR UNKNOWN INDICATION
     Dosage: UNK
     Dates: start: 20200122, end: 20200127
  24. NO-SPA [Suspect]
     Active Substance: DROTAVERINE HYDROCHLORIDE
     Indication: PRODUCT USED FOR UNKNOWN INDICATION
     Dosage: UNK
     Dates: start: 20200120, end: 20200120
  25. PROPOFOL. [Suspect]
     Active Substance: PROPOFOL
     Indication: PRODUCT USED FOR UNKNOWN INDICATION
     Dosage: 250 MILLIGRAM, TOTAL
     Dates: start: 20200117, end: 20200117

REACTIONS (1)
  - Deafness neurosensory [Not Recovered/Not Resolved]

NARRATIVE: CASE EVENT DATE: 20200124
